FAERS Safety Report 10982341 (Version 3)
Quarter: 2016Q4

REPORT INFORMATION
  Report Type: Spontaneous
  Country: US (occurrence: US)
  Receive Date: 20150403
  Receipt Date: 20161130
  Transmission Date: 20170206
  Serious: Yes (Hospitalization)
  Sender: FDA-Public Use
  Company Number: US-PFIZER INC-2015109495

PATIENT
  Age: 52 Year
  Sex: Female
  Weight: 71 kg

DRUGS (31)
  1. LYRICA [Suspect]
     Active Substance: PREGABALIN
     Indication: PAIN
     Dosage: 75 MG, 3X/DAY
     Route: 048
     Dates: start: 20150205, end: 20150309
  2. LYRICA [Suspect]
     Active Substance: PREGABALIN
     Indication: RADICULOPATHY
  3. VITAMIN D3 [Concomitant]
     Active Substance: CHOLECALCIFEROL
     Dosage: 1000 IU, DAILY
     Route: 048
     Dates: start: 20150213
  4. FLEXERIL [Concomitant]
     Active Substance: CYCLOBENZAPRINE HYDROCHLORIDE
     Indication: MUSCLE SPASMS
     Dosage: 10 MG, AS NEEDED (TAKE 1 TABLET BY MOUTH 3 TIMES DAILY AS NEEDED)
     Route: 048
     Dates: start: 20141126
  5. SYMBICORT [Concomitant]
     Active Substance: BUDESONIDE\FORMOTEROL FUMARATE DIHYDRATE
     Dosage: UNK, 2X/DAY [BUDESONIDE-160/FORMOTEROL FUMARATE-4.5 MCG/ACT]
     Route: 055
  6. BENADRYL [Concomitant]
     Active Substance: DIPHENHYDRAMINE HYDROCHLORIDE
     Indication: DRUG HYPERSENSITIVITY
     Dosage: 25 MG, AS NEEDED (EVERY 6 (SIX) HOURS)
     Route: 048
  7. AZULFIDINE [Concomitant]
     Active Substance: SULFASALAZINE
     Dosage: 500 MG, 2X/DAY
     Route: 048
  8. LYRICA [Suspect]
     Active Substance: PREGABALIN
     Indication: BACK PAIN
  9. LASIX [Concomitant]
     Active Substance: FUROSEMIDE
     Indication: OEDEMA
     Dosage: 20 MG, DAILY
     Route: 048
     Dates: start: 20141126, end: 20141126
  10. LISINOPRIL. [Concomitant]
     Active Substance: LISINOPRIL
     Dosage: UNK
  11. CELEXA [Concomitant]
     Active Substance: CITALOPRAM HYDROBROMIDE
     Indication: DEPRESSION
     Dosage: 40 MG, DAILY
     Route: 048
     Dates: start: 20141126
  12. TRAZODONE [Concomitant]
     Active Substance: TRAZODONE HYDROCHLORIDE
     Dosage: UNK
  13. ZESTRIL [Concomitant]
     Active Substance: LISINOPRIL
     Dosage: 20 MG, 2X/DAY
     Route: 048
     Dates: start: 20141126
  14. DESYREL [Concomitant]
     Active Substance: TRAZODONE HYDROCHLORIDE
     Indication: MAJOR DEPRESSION
     Dosage: 1 DF, 1X/DAY (AT BEDTIME)
     Route: 048
     Dates: start: 20141126
  15. KEFLEX [Concomitant]
     Active Substance: CEPHALEXIN
     Dosage: 250 MG, 3X/DAY
     Route: 048
     Dates: start: 20150228
  16. VOLTAREN [Concomitant]
     Active Substance: DICLOFENAC SODIUM
     Dosage: 75 MG, 2X/DAY
     Route: 048
  17. PRINIVIL [Concomitant]
     Active Substance: LISINOPRIL
     Dosage: 20 MG, 2X/DAY
     Route: 048
     Dates: start: 20141126
  18. K-DUR [Concomitant]
     Active Substance: POTASSIUM CHLORIDE
     Indication: HYPERTENSION
     Dosage: 10 MEQ, 2X/DAY
     Route: 048
     Dates: start: 20141126
  19. DESYREL [Concomitant]
     Active Substance: TRAZODONE HYDROCHLORIDE
     Dosage: 100 MG, 1X/DAY (1 TABLET BY MOUTH NIGHTLY. 1 TAB AT BEDTIME)
     Route: 048
  20. KCL [Concomitant]
     Active Substance: POTASSIUM CHLORIDE
     Dosage: UNK
  21. PLAQUENIL [Concomitant]
     Active Substance: HYDROXYCHLOROQUINE SULFATE
     Dosage: 200 MG, 2X/DAY
     Route: 048
  22. DELTASONE [Concomitant]
     Active Substance: PREDNISONE
     Dosage: 5 UNK, (ONE TABLET EVERY 2 DAYS)
  23. LYRICA [Suspect]
     Active Substance: PREGABALIN
     Indication: PAIN IN EXTREMITY
     Dosage: 100 MG, 3X/DAY
     Route: 048
     Dates: start: 20161121
  24. LYRICA [Suspect]
     Active Substance: PREGABALIN
     Indication: INTERVERTEBRAL DISC DISORDER
  25. ASPIRIN. [Concomitant]
     Active Substance: ASPIRIN
     Dosage: 81 MG, UNK
     Route: 048
     Dates: start: 20130502
  26. NORCO [Concomitant]
     Active Substance: ACETAMINOPHEN\HYDROCODONE BITARTRATE
     Indication: PAIN
     Dosage: 1 DF, AS NEEDED (TAKE 1 TABLET BY MOUTH EVERY 4 HOURS AS NEEDED)
     Route: 048
     Dates: start: 20150225
  27. OSCAL-500 [Concomitant]
     Dosage: 2 DF, DAILY
     Route: 048
     Dates: start: 20140213
  28. ATIVAN [Concomitant]
     Active Substance: LORAZEPAM
     Dosage: 1 MG, 3X/DAY
     Route: 048
     Dates: start: 20141201
  29. KLOR-CON [Concomitant]
     Active Substance: POTASSIUM CHLORIDE
     Indication: HYPERTENSION
     Dosage: 10 MEQ, 2X/DAY
     Dates: start: 20141126
  30. CALCIUM CARBONATE/COLECALCIFEROL [Concomitant]
     Dosage: UNK
  31. DELTASONE [Concomitant]
     Active Substance: PREDNISONE
     Dosage: 25 MG, DAILY (5 MG TABLET, 5 TABLETS BY MOUTH DAILY FOR 2 DAYS)
     Route: 048

REACTIONS (9)
  - Loss of consciousness [Unknown]
  - Nervousness [Unknown]
  - Walking aid user [Unknown]
  - Dysphoria [Unknown]
  - Psychomotor hyperactivity [Unknown]
  - Musculoskeletal discomfort [Unknown]
  - Syncope [Unknown]
  - Anxiety [Unknown]
  - Drug dispensing error [Unknown]
